FAERS Safety Report 7240290-3 (Version None)
Quarter: 2011Q1

REPORT INFORMATION
  Report Type: 
  Country: None (occurrence: None)
  Receive Date: 20110124
  Receipt Date: 20110112
  Transmission Date: 20110831
  Serious: Yes (Other)
  Sender: FDA-Public Use
  Company Number: PHHY2011US02830

PATIENT
  Sex: Male

DRUGS (1)
  1. DIOVAN HCT [Suspect]
     Dosage: 1 DF, QD
     Dates: start: 20090601

REACTIONS (5)
  - DIARRHOEA [None]
  - FREQUENT BOWEL MOVEMENTS [None]
  - THROAT CANCER [None]
  - BLOOD PRESSURE DECREASED [None]
  - NAUSEA [None]
